FAERS Safety Report 17744733 (Version 5)
Quarter: 2023Q1

REPORT INFORMATION
  Report Type: Spontaneous
  Country: US (occurrence: US)
  Receive Date: 20200505
  Receipt Date: 20230104
  Transmission Date: 20230418
  Serious: Yes (Other)
  Sender: FDA-Public Use
  Company Number: US-PFIZER INC-2020179131

PATIENT
  Age: 65 Year
  Sex: Female

DRUGS (1)
  1. XELJANZ XR [Suspect]
     Active Substance: TOFACITINIB CITRATE
     Dosage: 11 MG, 1X/DAY

REACTIONS (7)
  - Diabetes mellitus [Unknown]
  - Multiple sclerosis [Unknown]
  - Heart rate increased [Unknown]
  - Lipids increased [Unknown]
  - Pain [Unknown]
  - Illness [Unknown]
  - Dysphonia [Unknown]
